FAERS Safety Report 6609445-2 (Version None)
Quarter: 2010Q1

REPORT INFORMATION
  Report Type: 
  Country: None (occurrence: None)
  Receive Date: 20100302
  Receipt Date: 20100211
  Transmission Date: 20100710
  Serious: Yes (Other)
  Sender: FDA-Public Use
  Company Number: ES-JNJFOC-20091006379

PATIENT
  Sex: Male
  Weight: 31.6 kg

DRUGS (3)
  1. CONCERTA [Suspect]
     Indication: ATTENTION DEFICIT/HYPERACTIVITY DISORDER
     Route: 048
     Dates: end: 20091018
  2. CONCERTA [Suspect]
     Route: 048
     Dates: end: 20091018
  3. STRATTERA [Suspect]
     Indication: ATTENTION DEFICIT/HYPERACTIVITY DISORDER
     Route: 048
     Dates: end: 20091018

REACTIONS (5)
  - AKATHISIA [None]
  - ANXIETY [None]
  - CHOREA [None]
  - RESTLESSNESS [None]
  - TIC [None]
